FAERS Safety Report 5595669-2 (Version None)
Quarter: 2008Q1

REPORT INFORMATION
  Report Type: 
  Country: None (occurrence: None)
  Receive Date: 20080118
  Receipt Date: 20080109
  Transmission Date: 20080703
  Serious: Yes (Other)
  Sender: FDA-Public Use
  Company Number: DE-AMGEN-US260248

PATIENT
  Sex: Female

DRUGS (2)
  1. ENBREL [Suspect]
     Indication: DRUG USE FOR UNKNOWN INDICATION
     Dosage: LYOPHILIZED (DOSE AND FREQUENCY UNKNOWN)
     Route: 058
  2. ENBREL [Suspect]
     Dosage: PRE-FILLED SYRINGE (DOSE AND FREQUENCY UNKNOWN)
     Route: 058

REACTIONS (1)
  - CEREBROVASCULAR ACCIDENT [None]
